FAERS Safety Report 4831415-5 (Version None)
Quarter: 2005Q4

REPORT INFORMATION
  Report Type: 
  Country: None (occurrence: None)
  Receive Date: 20051114
  Receipt Date: 20051103
  Transmission Date: 20060501
  Serious: Yes (Life-Threatening)
  Sender: FDA-Public Use
  Company Number: 12799

PATIENT
  Age: 65 Year
  Sex: Male

DRUGS (5)
  1. MORPHINE [Suspect]
     Indication: POSTOPERATIVE ANALGESIA
     Dosage: 2 MG IV
     Route: 042
     Dates: start: 20050928, end: 20050928
  2. BUPIVACAINE [Concomitant]
  3. CATAPRES [Concomitant]
  4. EPINEPHRINE [Concomitant]
  5. TEMAZEPAM [Concomitant]

REACTIONS (5)
  - BRADYCARDIA [None]
  - CIRCULATORY COLLAPSE [None]
  - MALAISE [None]
  - PRURITUS [None]
  - URTICARIA LOCALISED [None]
